FAERS Safety Report 7785898-1 (Version None)
Quarter: 2011Q3

REPORT INFORMATION
  Report Type: 
  Country: None (occurrence: None)
  Receive Date: 20110929
  Receipt Date: 20110921
  Transmission Date: 20111222
  Serious: Yes (Death, Life-Threatening, Hospitalization, Other)
  Sender: FDA-Public Use
  Company Number: JP-GENZYME-THYM-1001738

PATIENT
  Sex: Female
  Weight: 44 kg

DRUGS (49)
  1. ITRACONAZOLE [Concomitant]
     Indication: ANTIFUNGAL PROPHYLAXIS
     Dosage: UNK
     Dates: start: 20080101, end: 20090413
  2. CYCLOSPORINE [Concomitant]
     Indication: PROPHYLAXIS AGAINST GRAFT VERSUS HOST DISEASE
     Dosage: UNK
     Dates: start: 20090402, end: 20090703
  3. CYCLOSPORINE [Concomitant]
     Dosage: UNK
     Dates: start: 20090529, end: 20090703
  4. CYCLOSPORINE [Concomitant]
     Dosage: UNK
     Dates: start: 20090731
  5. HYDROCORTISONE SODIUM SUCCINATE [Concomitant]
     Indication: PROPHYLAXIS
     Dosage: UNK
     Dates: start: 20090303, end: 20090306
  6. HEPARIN SODIUM [Concomitant]
     Indication: PROPHYLAXIS
     Dosage: UNK
     Dates: start: 20090228, end: 20090316
  7. TACROLIMUS [Concomitant]
     Indication: PROPHYLAXIS AGAINST GRAFT VERSUS HOST DISEASE
     Dosage: UNK
     Dates: start: 20090311, end: 20090402
  8. ACYCLOVIR [Concomitant]
     Indication: ANTIVIRAL PROPHYLAXIS
     Dosage: UNK
     Dates: start: 20080101, end: 20090607
  9. FAMOTIDINE [Concomitant]
     Indication: GASTRITIS PROPHYLAXIS
     Dosage: UNK
     Dates: start: 20080101, end: 20090719
  10. ANTIBIOTICS-RESISTANT LACTIC ACID BACTERIAE [Concomitant]
     Indication: PROPHYLAXIS
     Dosage: UNK
     Dates: start: 20080101, end: 20090722
  11. ACETAZOLAMIDE [Concomitant]
     Indication: PROPHYLAXIS
     Dosage: UNK
     Dates: start: 20090306, end: 20090324
  12. GLYCERIN W [Concomitant]
     Indication: PROPHYLAXIS
     Dosage: UNK
     Dates: start: 20090402, end: 20090402
  13. THYMOGLOBULIN [Suspect]
     Indication: BONE MARROW CONDITIONING REGIMEN
     Dosage: 45 MG, QD
     Route: 042
     Dates: start: 20090309, end: 20090312
  14. CIPROFLOXACIN [Concomitant]
     Indication: ANTIBIOTIC PROPHYLAXIS
     Dosage: UNK
     Dates: start: 20090227, end: 20090312
  15. CYTARABINE [Concomitant]
     Indication: BONE MARROW CONDITIONING REGIMEN
     Dosage: UNK
     Dates: start: 20090303, end: 20090306
  16. HAPTOGLOBINS [Concomitant]
     Indication: PREMEDICATION
     Dosage: UNK
     Dates: start: 20090313, end: 20090313
  17. OMEPRAZOLE [Concomitant]
     Indication: HAEMORRHAGE PROPHYLAXIS
     Dosage: UNK
     Dates: start: 20090719, end: 20090729
  18. DAIO-KANZO-TO [Concomitant]
     Indication: CONSTIPATION
     Dosage: UNK
     Dates: start: 20090506
  19. FILGRASTIM [Concomitant]
     Indication: COLONY STIMULATING FACTOR THERAPY
     Dosage: UNK
     Route: 065
     Dates: start: 20090520, end: 20090526
  20. URSODIOL [Concomitant]
     Indication: PROPHYLAXIS
     Dosage: UNK
     Dates: start: 20090303, end: 20090628
  21. ZOLPIDEM [Concomitant]
     Indication: INSOMNIA
     Dosage: UNK
     Dates: start: 20080101
  22. MAGNESIUM OXIDE [Concomitant]
     Indication: CONSTIPATION
     Dosage: UNK
     Dates: start: 20080101
  23. SOYBEAN OIL [Concomitant]
     Dosage: UNK
     Dates: start: 20090724, end: 20090811
  24. VALACYCLOVIR HYDROCHLORIDE [Concomitant]
     Indication: ANTIVIRAL PROPHYLAXIS
     Dosage: UNK
     Dates: start: 20090607, end: 20090709
  25. ACYCLOVIR [Concomitant]
     Dosage: UNK
     Dates: start: 20090709
  26. GRANISETRON HYDROCHLORIDE [Concomitant]
     Indication: PROPHYLAXIS OF NAUSEA AND VOMITING
     Dosage: UNK
     Dates: start: 20090303, end: 20090311
  27. METHYLPREDNISOLONE SODIUM SUCCINATE [Concomitant]
     Indication: PREMEDICATION
     Dosage: UNK
     Dates: start: 20090309, end: 20090406
  28. FILGRASTIM [Concomitant]
     Indication: INFECTION PROPHYLAXIS
     Dosage: UNK
     Route: 065
     Dates: start: 20090611, end: 20090619
  29. CEOLAT [Concomitant]
     Indication: CONSTIPATION
     Dosage: UNK
     Route: 065
     Dates: start: 20090323
  30. SOYBEAN OIL [Concomitant]
     Indication: PROPHYLAXIS
     Dosage: UNK
     Dates: start: 20090314, end: 20090422
  31. FLUDARABINE PHOSPHATE [Concomitant]
     Indication: BONE MARROW CONDITIONING REGIMEN
     Dosage: 41 MG, QD
     Dates: start: 20090303, end: 20090308
  32. MIXED AMINO ACID CARBOHYDRATE ELECTROLYTE VITAMIN COMBINE [Concomitant]
     Indication: PROPHYLAXIS
     Dosage: UNK
     Dates: start: 20090228, end: 20090505
  33. DALTEPARIN SODIUM [Concomitant]
     Indication: PROPHYLAXIS
     Dosage: UNK
     Dates: start: 20090307, end: 20090324
  34. DOPAMINE HYDROCHLORIDE [Concomitant]
     Indication: HYPOTENSION
     Dosage: UNK
     Route: 065
     Dates: start: 20090313, end: 20090331
  35. TRIMETHOPRIM + SULFAMETHOXAZOLE [Concomitant]
     Indication: ANTIFUNGAL PROPHYLAXIS
     Dosage: UNK
     Dates: start: 20080101, end: 20090310
  36. REBAMIPIDE [Concomitant]
     Indication: GASTRITIS PROPHYLAXIS
     Dosage: UNK
     Dates: start: 20080101, end: 20090719
  37. REBAMIPIDE [Concomitant]
     Dosage: UNK
     Dates: start: 20090730
  38. ISONIAZID [Concomitant]
     Indication: ANTIBIOTIC PROPHYLAXIS
     Dosage: UNK
     Dates: start: 20080101
  39. RISEDRONATE SODIUM [Concomitant]
     Indication: OSTEOPOROSIS PROPHYLAXIS
     Dosage: UNK
     Dates: start: 20080101, end: 20090327
  40. MELPHALAN HYDROCHLORIDE [Concomitant]
     Indication: BONE MARROW CONDITIONING REGIMEN
     Dosage: UNK
     Dates: start: 20090310, end: 20090311
  41. CARBAZOCHROME SODIUM SULFONATE [Concomitant]
     Indication: HAEMORRHAGE PROPHYLAXIS
     Dosage: UNK
     Dates: start: 20090316
  42. IMMUNE GLOBULIN (HUMAN) [Concomitant]
     Indication: INFECTION PROPHYLAXIS
     Dosage: UNK
     Dates: start: 20090724, end: 20090726
  43. TRIMETHOPRIM + SULFAMETHOXAZOLE [Concomitant]
     Dosage: UNK
     Dates: start: 20090327
  44. ITRACONAZOLE [Concomitant]
     Dosage: UNK
     Dates: start: 20090731
  45. FAMOTIDINE [Concomitant]
     Dosage: UNK
     Dates: start: 20090730
  46. HYDROCORTISONE SODIUM SUCCINATE [Concomitant]
     Indication: PREMEDICATION
     Dosage: UNK
     Dates: start: 20090313, end: 20090313
  47. HYDROXYZINE [Concomitant]
     Indication: PREMEDICATION
     Dosage: UNK
     Dates: start: 20090313, end: 20090313
  48. CEFCAPENE PIVOXIL HYDROCHLORIDE [Concomitant]
     Indication: ANTIBIOTIC PROPHYLAXIS
     Dosage: UNK
     Dates: start: 20090722, end: 20090724
  49. CLOSTRIDIUM BUTYRICUM [Concomitant]
     Indication: PROPHYLAXIS
     Dosage: UNK
     Dates: start: 20090722

REACTIONS (31)
  - PANCYTOPENIA [None]
  - HYPERCALCAEMIA [None]
  - CONSTIPATION [None]
  - RENAL DISORDER [None]
  - ELECTROLYTE IMBALANCE [None]
  - HYPERGLYCAEMIA [None]
  - HYPERTENSION [None]
  - ACUTE GRAFT VERSUS HOST DISEASE IN SKIN [None]
  - ANAPHYLACTOID REACTION [None]
  - HYPOGLYCAEMIA [None]
  - FLUID RETENTION [None]
  - ACUTE GRAFT VERSUS HOST DISEASE IN LIVER [None]
  - ACUTE GRAFT VERSUS HOST DISEASE IN INTESTINE [None]
  - CYTOMEGALOVIRUS INFECTION [None]
  - CONVULSION [None]
  - BLOOD LACTATE DEHYDROGENASE INCREASED [None]
  - LIVER DISORDER [None]
  - PERICARDIAL EFFUSION [None]
  - TUBULOINTERSTITIAL NEPHRITIS [None]
  - ALTERED STATE OF CONSCIOUSNESS [None]
  - KLEBSIELLA SEPSIS [None]
  - GRAFT VERSUS HOST DISEASE [None]
  - CARDIAC TAMPONADE [None]
  - VENOOCCLUSIVE LIVER DISEASE [None]
  - THROMBOTIC MICROANGIOPATHY [None]
  - PSEUDOMEMBRANOUS COLITIS [None]
  - HEPATIC MASS [None]
  - ENTEROCOLITIS [None]
  - FUNGAL INFECTION [None]
  - CYTOMEGALOVIRUS TEST POSITIVE [None]
  - THROMBOCYTOPENIA [None]
